FAERS Safety Report 16344354 (Version 4)
Quarter: 2019Q2

REPORT INFORMATION
  Report Type: Spontaneous
  Country: US (occurrence: US)
  Receive Date: 20190522
  Receipt Date: 20190618
  Transmission Date: 20190711
  Serious: Yes (Other)
  Sender: FDA-Public Use
  Company Number: US-PFIZER INC-2019214043

PATIENT
  Age: 67 Year
  Sex: Male

DRUGS (2)
  1. PREDNISONE. [Concomitant]
     Active Substance: PREDNISONE
     Dosage: UNK
     Dates: start: 2009
  2. XELJANZ XR [Suspect]
     Active Substance: TOFACITINIB CITRATE
     Dosage: 11 MG, UNK

REACTIONS (12)
  - Myocardial infarction [Unknown]
  - Diabetes mellitus [Unknown]
  - Cardiac failure congestive [Unknown]
  - Renal disorder [Unknown]
  - Pulmonary oedema [Unknown]
  - Pain [Unknown]
  - Sleep disorder [Unknown]
  - Drug ineffective [Unknown]
  - Hand deformity [Unknown]
  - Ocular hyperaemia [Unknown]
  - Migraine [Unknown]
  - Lipid metabolism disorder [Unknown]
